FAERS Safety Report 15097138 (Version 2)
Quarter: 2019Q1

REPORT INFORMATION
  Report Type: Spontaneous
  Country: US (occurrence: US)
  Receive Date: 20180702
  Receipt Date: 20190304
  Transmission Date: 20190417
  Serious: Yes (Other)
  Sender: FDA-Public Use
  Company Number: US-GLAXOSMITHKLINE-US2018GSK115537

PATIENT
  Age: 63 Year
  Sex: Female
  Weight: 48.98 kg

DRUGS (4)
  1. WELLBUTRIN XL [Suspect]
     Active Substance: BUPROPION HYDROCHLORIDE
     Indication: DEPRESSION
     Dosage: 150 MG, QD
     Route: 048
     Dates: start: 2004
  2. BUPROPION. [Suspect]
     Active Substance: BUPROPION
     Indication: PRODUCT USED FOR UNKNOWN INDICATION
     Route: 048
  3. LORAZEPAM. [Concomitant]
     Active Substance: LORAZEPAM
  4. BUPROPION. [Suspect]
     Active Substance: BUPROPION
     Indication: DEPRESSION

REACTIONS (12)
  - Stress [Unknown]
  - Weight decreased [Not Recovered/Not Resolved]
  - Product dose omission [Unknown]
  - Product substitution issue [Unknown]
  - Condition aggravated [Unknown]
  - Drug ineffective [Unknown]
  - Inability to afford medication [Unknown]
  - Ill-defined disorder [Unknown]
  - Autoimmune thyroiditis [Unknown]
  - Constipation [Unknown]
  - Insomnia [Unknown]
  - Adverse drug reaction [Unknown]

NARRATIVE: CASE EVENT DATE: 2017
